FAERS Safety Report 12699610 (Version 2)
Quarter: 2019Q2

REPORT INFORMATION
  Report Type: Report from Study
  Country: DE (occurrence: DE)
  Receive Date: 20160830
  Receipt Date: 20190429
  Transmission Date: 20190711
  Serious: Yes (Death, Life-Threatening, Other)
  Sender: FDA-Public Use
  Company Number: DE-JNJFOC-20160822591

PATIENT

DRUGS (4)
  1. DOXORUBICIN HYDROCHLORIDE. [Suspect]
     Active Substance: DOXORUBICIN HYDROCHLORIDE
     Indication: HODGKIN^S DISEASE
     Dosage: ON DAYS 1 AND 15 OF A 28-DAY CYCLE
     Route: 042
  2. DACARBAZINE. [Suspect]
     Active Substance: DACARBAZINE
     Indication: HODGKIN^S DISEASE
     Dosage: ON DAYS 1 AND 15 OF A 28-DAY CYCLE
     Route: 065
  3. VINBLASTINE [Suspect]
     Active Substance: VINBLASTINE
     Indication: HODGKIN^S DISEASE
     Dosage: ON DAYS 1 AND 15 OF A 28-DAY CYCLE
     Route: 065
  4. LENALIDOMIDE [Suspect]
     Active Substance: LENALIDOMIDE
     Indication: HODGKIN^S DISEASE
     Dosage: 4-8 CYCLES, DOSE LEVELS RANGING FROM 5 TO 40 MG
     Route: 065

REACTIONS (25)
  - Leukaemia [Fatal]
  - Venous thrombosis [Recovered/Resolved]
  - Vomiting [Recovered/Resolved]
  - Pain [Recovered/Resolved]
  - Nervous system disorder [Recovered/Resolved]
  - Infection [Recovered/Resolved]
  - Gastrointestinal toxicity [Recovered/Resolved]
  - Thrombocytopenia [Recovered/Resolved]
  - Phlebitis [Recovered/Resolved]
  - Pruritus [Recovered/Resolved]
  - Off label use [Unknown]
  - Alopecia [Recovered/Resolved]
  - Leukopenia [Fatal]
  - Cardiotoxicity [Recovered/Resolved]
  - Haematotoxicity [Recovered/Resolved]
  - Nausea [Recovered/Resolved]
  - Ischaemia [Recovered/Resolved]
  - Respiratory disorder [Recovered/Resolved]
  - Product use in unapproved indication [Unknown]
  - Anaemia [Recovered/Resolved]
  - Embolism [Recovered/Resolved]
  - Toxicity to various agents [Recovered/Resolved]
  - Neutropenia [Recovered/Resolved]
  - Mucosal inflammation [Recovered/Resolved]
  - Abscess [Recovered/Resolved]
